FAERS Safety Report 9147542 (Version 1)
Quarter: 2013Q1

REPORT INFORMATION
  Report Type: Spontaneous
  Country: AT (occurrence: AT)
  Receive Date: 20130307
  Receipt Date: 20130307
  Transmission Date: 20140127
  Serious: Yes (Other)
  Sender: FDA-Public Use
  Company Number: AT-VERTEX PHARMACEUTICALS INC.-2013-003122

PATIENT
  Age: 62 Year
  Sex: Female
  Weight: 55 kg

DRUGS (4)
  1. INCIVO [Suspect]
     Indication: HEPATITIS C
     Dosage: 375 G, BID
     Route: 065
     Dates: start: 20121116, end: 20130207
  2. PEGASYS [Suspect]
     Indication: HEPATITIS C
     Dosage: DOSAGE FORM: UNSPECIFIED
     Route: 058
     Dates: start: 20121116, end: 20130226
  3. COPEGUS [Suspect]
     Indication: HEPATITIS C
     Dosage: DOSAGE FORM: UNSPECIFIED
     Route: 048
     Dates: start: 20121116, end: 20130226
  4. ATARAX [Concomitant]
     Indication: PRURITUS
     Dosage: DOSAGE FORM: UNSPECIFIED
     Route: 065
     Dates: start: 20130214

REACTIONS (1)
  - Pulmonary fibrosis [Unknown]
